FAERS Safety Report 9785872 (Version 1)
Quarter: 2013Q4

REPORT INFORMATION
  Report Type: Spontaneous
  Country: US (occurrence: US)
  Receive Date: 20131227
  Receipt Date: 20131227
  Transmission Date: 20140711
  Serious: Yes (Other)
  Sender: FDA-Public Use
  Company Number: US-PERRIGO-13US013064

PATIENT
  Sex: Male

DRUGS (1)
  1. PODOPHYLLIN [Suspect]
     Indication: PAPILLOMA
     Route: 045
     Dates: start: 20111228

REACTIONS (3)
  - Toxicity to various agents [Unknown]
  - Polyneuropathy [Unknown]
  - Off label use [Unknown]
